FAERS Safety Report 15765505 (Version 1)
Quarter: 2018Q4

REPORT INFORMATION
  Report Type: Spontaneous
  Country: US (occurrence: US)
  Receive Date: 20181227
  Receipt Date: 20181227
  Transmission Date: 20190205
  Serious: Yes (Hospitalization)
  Sender: FDA-Public Use
  Company Number: None

PATIENT
  Age: 50 Year
  Sex: Female

DRUGS (8)
  1. DALFAMPRIDINE. [Suspect]
     Active Substance: DALFAMPRIDINE
     Indication: MULTIPLE SCLEROSIS
     Dosage: ?          OTHER FREQUENCY:Q12H;?
     Route: 048
     Dates: start: 20181108
  2. MYRBETRIQ [Concomitant]
     Active Substance: MIRABEGRON
  3. OCREVUS [Concomitant]
     Active Substance: OCRELIZUMAB
  4. MULTI VITAMIN [Concomitant]
     Active Substance: VITAMINS
  5. BISOPRL/HCTZ [Concomitant]
  6. CLARITIN [Concomitant]
     Active Substance: LORATADINE
  7. VITAMIN D3 [Concomitant]
     Active Substance: CHOLECALCIFEROL
  8. OMEPRAZOLE. [Concomitant]
     Active Substance: OMEPRAZOLE

REACTIONS (2)
  - Therapy cessation [None]
  - Oesophageal operation [None]

NARRATIVE: CASE EVENT DATE: 20181217
